FAERS Safety Report 13175992 (Version 2)
Quarter: 2017Q1

REPORT INFORMATION
  Report Type: Report from Study
  Country: US (occurrence: US)
  Receive Date: 20170201
  Receipt Date: 20170207
  Transmission Date: 20170428
  Serious: Yes (Life-Threatening, Hospitalization, Other)
  Sender: FDA-Public Use
  Company Number: US-GILEAD-2017-0255441

PATIENT
  Age: 51 Year
  Sex: Male
  Weight: 72.7 kg

DRUGS (2)
  1. LEDIPASVIR/SOFOSBUVIR [Suspect]
     Active Substance: LEDIPASVIR\SOFOSBUVIR
     Dosage: 1 UNK, UNK
     Route: 048
     Dates: start: 20170129
  2. LEDIPASVIR/SOFOSBUVIR [Suspect]
     Active Substance: LEDIPASVIR\SOFOSBUVIR
     Indication: CHRONIC HEPATITIS C
     Dosage: 1 DF, QD
     Route: 048
     Dates: start: 20170111, end: 20170121

REACTIONS (7)
  - Haemorrhagic anaemia [Recovered/Resolved]
  - Haematochezia [Recovering/Resolving]
  - Drug dose omission [Recovered/Resolved]
  - Haematemesis [Recovering/Resolving]
  - Varices oesophageal [Not Recovered/Not Resolved]
  - Upper gastrointestinal haemorrhage [Recovered/Resolved]
  - Ileus [Recovered/Resolved]

NARRATIVE: CASE EVENT DATE: 20170121
